FAERS Safety Report 5455088-6 (Version None)
Quarter: 2007Q3

REPORT INFORMATION
  Report Type: 
  Country: None (occurrence: None)
  Receive Date: 20070913
  Receipt Date: 20070905
  Transmission Date: 20080115
  Serious: No
  Sender: FDA-Public Use
  Company Number: TPG2007A00557

PATIENT
  Age: 53 Year
  Sex: Male

DRUGS (11)
  1. ACTOS [Suspect]
     Indication: TYPE 2 DIABETES MELLITUS
     Dosage: 15 MG (15 MG, 1 IN 1 D) PER ORAL
     Route: 048
     Dates: start: 20070726
  2. PANTOZOL (PANTOPRAZOLE SODIUM) [Concomitant]
  3. SIMVASTATIN [Concomitant]
  4. LYRICA [Concomitant]
  5. RAMIPRIL [Concomitant]
  6. BISOPROLOL FUMARATE [Concomitant]
  7. PALLADONE [Concomitant]
  8. TOREM (TORASEMIDE) [Concomitant]
  9. ALLOPURINOL [Concomitant]
  10. SULPIRIDE (SULPIRIDE) [Concomitant]
  11. ACETYLSALICYLIC ACID SRT [Concomitant]

REACTIONS (1)
  - PERICARDIAL EFFUSION [None]
